FAERS Safety Report 5318673-8 (Version None)
Quarter: 2007Q1

REPORT INFORMATION
  Report Type: 
  Country: None (occurrence: None)
  Receive Date: 20070130
  Receipt Date: 20061020
  Transmission Date: 20070707
  Serious: No
  Sender: FDA-Public Use
  Company Number: 200613992US

PATIENT
  Age: 28 Year
  Sex: Female

DRUGS (1)
  1. KETEK [Suspect]
     Indication: EAR INFECTION
     Dosage: 800 MG QD PO
     Route: 048
     Dates: start: 20060501, end: 20060501

REACTIONS (1)
  - VISION BLURRED [None]
